FAERS Safety Report 17895232 (Version 1)
Quarter: 2020Q2

REPORT INFORMATION
  Report Type: Spontaneous
  Country: MX (occurrence: MX)
  Receive Date: 20200615
  Receipt Date: 20200615
  Transmission Date: 20200714
  Serious: Yes (Death, Other)
  Sender: FDA-Public Use
  Company Number: MX-VISTAPHARM, INC.-VER202006-001114

PATIENT
  Age: 37 Year
  Sex: Female

DRUGS (8)
  1. CHLORPHENAMINE [Concomitant]
     Active Substance: CHLORPHENIRAMINE MALEATE
     Indication: URTICARIA
     Dosage: UNKNOWN
  2. CLARITHROMYCIN. [Concomitant]
     Active Substance: CLARITHROMYCIN
     Indication: PYREXIA
     Dosage: UNKNOWN
  3. RANITIDINE. [Concomitant]
     Active Substance: RANITIDINE
     Indication: PYREXIA
     Dosage: UNKNOWN
  4. DEXAMETHASONE. [Concomitant]
     Active Substance: DEXAMETHASONE
     Indication: PYREXIA
     Dosage: UNKNOWN
  5. TRIMETHOPRIM/SULFAMETHOXAZOLE [Concomitant]
     Active Substance: SULFAMETHOXAZOLE\TRIMETHOPRIM
     Indication: PRODUCT USED FOR UNKNOWN INDICATION
     Dosage: UNKNOWN
  6. PARAMETHASONE [Concomitant]
     Active Substance: PARAMETHASONE
     Indication: URTICARIA
     Dosage: UNKNOWN
  7. HYDROCODONE AND ACETAMINOPHEN [Suspect]
     Active Substance: ACETAMINOPHEN\HYDROCODONE
     Indication: PYREXIA
     Dosage: 3-4 G/DAY
  8. CIPROFLOXACIN. [Concomitant]
     Active Substance: CIPROFLOXACIN
     Indication: PYREXIA
     Dosage: UNKNOWN

REACTIONS (2)
  - Hepatic failure [Fatal]
  - Multiple organ dysfunction syndrome [Fatal]
